FAERS Safety Report 8018637-X (Version None)
Quarter: 2012Q1

REPORT INFORMATION
  Report Type: 
  Country: None (occurrence: None)
  Receive Date: 20120103
  Receipt Date: 20111227
  Transmission Date: 20120608
  Serious: Yes (Hospitalization)
  Sender: FDA-Public Use
  Company Number: IT-PFIZER INC-2011306807

PATIENT
  Age: 57 Year
  Sex: Male

DRUGS (10)
  1. NORVASC [Suspect]
     Indication: HYPERTENSION
     Dosage: 10 MG, 1X/DAY
     Route: 048
     Dates: start: 20090101, end: 20111014
  2. IRON B [Concomitant]
     Indication: DEFICIENCY ANAEMIA
     Dosage: UNK
     Route: 048
  3. HALOPERIDOL [Suspect]
     Indication: PSYCHOTIC DISORDER
     Dosage: 2 MG/ML, 1X/DAY
     Route: 030
     Dates: start: 20090101, end: 20111014
  4. SELEPARINA [Concomitant]
     Indication: THROMBOSIS PROPHYLAXIS
     Dosage: UNK
     Route: 058
  5. PREFOLIC [Concomitant]
     Indication: VITAMIN SUPPLEMENTATION
     Dosage: 15 MG, 1X/DAY
     Route: 048
  6. PANTOPRAZOLE SODIUM [Suspect]
     Indication: PROPHYLAXIS AGAINST GASTROINTESTINAL ULCER
     Dosage: 20 MG DAILY
     Route: 048
     Dates: start: 20090101, end: 20111014
  7. LASIX [Suspect]
     Indication: OEDEMA
     Dosage: UNK
     Route: 048
     Dates: start: 20090101, end: 20111014
  8. LEKOVIT CA [Concomitant]
     Dosage: 600 MG, 1X/DAY
     Route: 048
  9. ZYPREXA [Suspect]
     Indication: PSYCHOTIC DISORDER
     Dosage: 10 MG, 2X/DAY
     Route: 048
     Dates: start: 20090101, end: 20111014
  10. BENEXOL [Concomitant]
     Indication: HYPOVITAMINOSIS
     Dosage: UNK

REACTIONS (1)
  - CONFUSIONAL STATE [None]
